FAERS Safety Report 5121627-8 (Version None)
Quarter: 2006Q4

REPORT INFORMATION
  Report Type: 
  Country: None (occurrence: None)
  Receive Date: 20061003
  Receipt Date: 20060925
  Transmission Date: 20070319
  Serious: Yes (Other)
  Sender: FDA-Public Use
  Company Number: 2006116421

PATIENT
  Sex: Female

DRUGS (1)
  1. ZOLOFT [Suspect]
     Dosage: 50 MG (25 MG, FREQUENCY: BID INTERVAL: DAILY); ORAL
     Route: 048

REACTIONS (2)
  - CONDITION AGGRAVATED [None]
  - HYPERTENSION [None]
